FAERS Safety Report 6015228-7 (Version None)
Quarter: 2008Q4

REPORT INFORMATION
  Report Type: 
  Country: None (occurrence: None)
  Receive Date: 20081222
  Receipt Date: 20081218
  Transmission Date: 20090506
  Serious: Yes (Other)
  Sender: FDA-Public Use
  Company Number: CA-WYE-G02796108

PATIENT
  Sex: Male

DRUGS (8)
  1. TACROLIMUS [Suspect]
     Indication: IMMUNOSUPPRESSION
     Dosage: 3 MG EVERY
     Route: 048
     Dates: start: 20080821, end: 20080921
  2. TACROLIMUS [Suspect]
     Dosage: 2 MG EVERY
     Route: 048
     Dates: start: 20080913, end: 20080919
  3. TACROLIMUS [Suspect]
     Dosage: 3 MG EVERY
     Route: 048
     Dates: start: 20080920, end: 20080922
  4. TACROLIMUS [Suspect]
     Dosage: 4 MG EVERY
     Route: 048
     Dates: start: 20080923, end: 20080924
  5. TACROLIMUS [Suspect]
     Dosage: 5 MG EVERY
     Route: 048
     Dates: start: 20080925
  6. LEFLUNOMIDE [Concomitant]
     Dosage: UNKNOWN
     Dates: start: 20081006
  7. CELLCEPT [Concomitant]
     Indication: IMMUNOSUPPRESSION
     Dosage: 2 G EVERY
     Route: 048
     Dates: start: 20080722, end: 20080912
  8. CELLCEPT [Concomitant]
     Dosage: 1 G EVERY
     Route: 048
     Dates: start: 20080913, end: 20081006

REACTIONS (2)
  - BK VIRUS INFECTION [None]
  - TRANSPLANT REJECTION [None]
